FAERS Safety Report 9388918 (Version 1)
Quarter: 2013Q3

REPORT INFORMATION
  Report Type: Spontaneous
  Country: US (occurrence: US)
  Receive Date: 20130708
  Receipt Date: 20130708
  Transmission Date: 20140515
  Serious: Yes (Death, Hospitalization, Other)
  Sender: FDA-Public Use
  Company Number: PHHY2013US071455

PATIENT
  Age: 24 Year
  Sex: Female

DRUGS (5)
  1. ACICLOVIR [Suspect]
     Route: 042
  2. TACROLIMUS [Suspect]
     Dosage: 20 MG, PER DAY
  3. SIROLIMUS [Concomitant]
  4. PREDNISONE [Concomitant]
     Dosage: 2.5 MG, PER DAY
  5. MYCOPHENOLATE MOFETIL [Concomitant]
     Dosage: 1000 MG, PER DAY

REACTIONS (13)
  - Herpes simplex hepatitis [Fatal]
  - Abdominal pain [Fatal]
  - Pyrexia [Fatal]
  - Hepatic function abnormal [Fatal]
  - Hepatosplenomegaly [Fatal]
  - Coagulopathy [Fatal]
  - Shock haemorrhagic [Fatal]
  - Upper gastrointestinal haemorrhage [Fatal]
  - Cardiogenic shock [Unknown]
  - Renal failure [Unknown]
  - Viraemia [Unknown]
  - Immunosuppressant drug level increased [Unknown]
  - Drug resistance [Unknown]
